FAERS Safety Report 10445086 (Version 1)
Quarter: 2014Q3

REPORT INFORMATION
  Report Type: Spontaneous
  Country: US (occurrence: US)
  Receive Date: 20140910
  Receipt Date: 20140910
  Transmission Date: 20150326
  Serious: No
  Sender: FDA-Public Use
  Company Number: US-PFIZER INC-2014249468

PATIENT

DRUGS (5)
  1. TRENTAL [Suspect]
     Active Substance: PENTOXIFYLLINE
     Dosage: UNK
  2. QUALAQUIN [Suspect]
     Active Substance: QUININE SULFATE
     Dosage: UNK
  3. ARTHROTEC [Suspect]
     Active Substance: DICLOFENAC SODIUM\MISOPROSTOL
     Dosage: UNK
  4. LISINOPRIL. [Suspect]
     Active Substance: LISINOPRIL
     Dosage: UNK
  5. PLETAL [Suspect]
     Active Substance: CILOSTAZOL
     Dosage: UNK

REACTIONS (1)
  - Drug hypersensitivity [Unknown]
